FAERS Safety Report 5526186-3 (Version None)
Quarter: 2007Q4

REPORT INFORMATION
  Report Type: 
  Country: None (occurrence: None)
  Receive Date: 20071120
  Receipt Date: 20071106
  Transmission Date: 20080405
  Serious: Yes (Death)
  Sender: FDA-Public Use
  Company Number: 071022-0001229

PATIENT

DRUGS (1)
  1. INDOCIN [Suspect]
     Indication: PATENT DUCTUS ARTERIOSUS
     Dosage: 0.2 MG/KG;QD;PO
     Route: 048

REACTIONS (1)
  - NECROTISING ENTEROCOLITIS NEONATAL [None]
